FAERS Safety Report 19096140 (Version 1)
Quarter: 2021Q2

REPORT INFORMATION
  Report Type: Spontaneous
  Country: US (occurrence: US)
  Receive Date: 20210405
  Receipt Date: 20210405
  Transmission Date: 20210717
  Serious: Yes (Hospitalization)
  Sender: FDA-Public Use
  Company Number: None

PATIENT
  Age: 56 Year
  Sex: Male

DRUGS (10)
  1. CELLCEPT [Concomitant]
     Active Substance: MYCOPHENOLATE MOFETIL\MYCOPHENOLATE MOFETIL HYDROCHLORIDE
  2. IMODIUM [Concomitant]
     Active Substance: LOPERAMIDE HYDROCHLORIDE
  3. AD [Concomitant]
  4. NEXIUM [Concomitant]
     Active Substance: ESOMEPRAZOLE MAGNESIUM
  5. METOPROL TAR [Concomitant]
  6. PROGRAF [Concomitant]
     Active Substance: TACROLIMUS
  7. IRON [Concomitant]
     Active Substance: IRON
  8. PREDNISON [Concomitant]
     Active Substance: PREDNISONE
  9. PROCRIT [Suspect]
     Active Substance: ERYTHROPOIETIN
     Indication: ANAEMIA
     Route: 058
     Dates: start: 20200811
  10. BACTRIM [Concomitant]
     Active Substance: SULFAMETHOXAZOLE\TRIMETHOPRIM

REACTIONS (2)
  - Dyspnoea [None]
  - Oesophageal rupture [None]

NARRATIVE: CASE EVENT DATE: 202103
